FAERS Safety Report 16594011 (Version 1)
Quarter: 2019Q3

REPORT INFORMATION
  Report Type: Report from Study
  Country: US (occurrence: US)
  Receive Date: 20190718
  Receipt Date: 20190718
  Transmission Date: 20191004
  Serious: Yes (Hospitalization, Other)
  Sender: FDA-Public Use
  Company Number: US-UCBSA-2018046095

PATIENT
  Age: 31 Year
  Sex: Male
  Weight: 79.37 kg

DRUGS (8)
  1. VALIUM [Concomitant]
     Active Substance: DIAZEPAM
     Indication: PRODUCT USED FOR UNKNOWN INDICATION
     Dosage: 5 MILLIGRAM, ONCE DAILY (QD)
     Route: 048
     Dates: start: 20180808
  2. DIVALPROEX [Concomitant]
     Active Substance: DIVALPROEX SODIUM
     Indication: PRODUCT USED FOR UNKNOWN INDICATION
     Dosage: 1000 MILLIGRAM, 2X/DAY (BID)
     Route: 048
     Dates: start: 20190521
  3. KEPPRA [Suspect]
     Active Substance: LEVETIRACETAM
     Indication: PRODUCT USED FOR UNKNOWN INDICATION
     Dosage: 1500 MILLIGRAM, 2X/DAY (BID)
     Route: 048
     Dates: start: 20190521
  4. DEPAKOTE [Concomitant]
     Active Substance: DIVALPROEX SODIUM
     Indication: SEIZURE
     Dosage: 250 MG, 2X/DAY (BID)
     Route: 048
     Dates: start: 20180626
  5. SERTRALINE [Concomitant]
     Active Substance: SERTRALINE HYDROCHLORIDE
     Indication: PRODUCT USED FOR UNKNOWN INDICATION
     Dosage: 50 MILLIGRAM, ONCE DAILY (QD)
     Route: 048
     Dates: start: 20190610
  6. LACOSAMIDE. [Suspect]
     Active Substance: LACOSAMIDE
     Indication: PARTIAL SEIZURES
     Dosage: INITIAL DOSE UNKNOWN
     Route: 048
     Dates: start: 20180603, end: 2018
  7. LACOSAMIDE. [Suspect]
     Active Substance: LACOSAMIDE
     Indication: SEIZURE
     Dosage: 200 MG, 2X/DAY (BID)
     Route: 048
     Dates: start: 2018
  8. ARICEPT [Concomitant]
     Active Substance: DONEPEZIL HYDROCHLORIDE
     Indication: PRODUCT USED FOR UNKNOWN INDICATION
     Dosage: 10 MILLIGRAM, ONCE DAILY (QD)
     Route: 048
     Dates: start: 20190521

REACTIONS (2)
  - Seizure [Not Recovered/Not Resolved]
  - Cerebrovascular accident [Recovered/Resolved]

NARRATIVE: CASE EVENT DATE: 20180603
